FAERS Safety Report 23724745 (Version 4)
Quarter: 2024Q4

REPORT INFORMATION
  Report Type: Report from Study
  Country: CO (occurrence: CO)
  Receive Date: 20240409
  Receipt Date: 20241105
  Transmission Date: 20250114
  Serious: Yes (Other)
  Sender: ABBVIE
  Company Number: CO-ABBVIE-5711326

PATIENT
  Age: 71 Year
  Sex: Male
  Weight: 72 kg

DRUGS (7)
  1. SKYRIZI [Suspect]
     Active Substance: RISANKIZUMAB-RZAA
     Indication: Psoriasis
     Dosage: FORM STRENGTH: 150 MG
     Route: 058
     Dates: start: 20230628
  2. SKYRIZI [Suspect]
     Active Substance: RISANKIZUMAB-RZAA
     Dosage: FORM STRENGTH: 150 MG
     Route: 058
     Dates: start: 202402, end: 20240628
  3. METOPROLOL [Concomitant]
     Active Substance: METOPROLOL
     Indication: Hypertension
     Dosage: START DATE TEXT: BEFORE SKYRIZI.
     Route: 048
     Dates: end: 202402
  4. HYDROCHLOROTHIAZIDE [Concomitant]
     Active Substance: HYDROCHLOROTHIAZIDE
     Indication: Hypertension
     Dosage: FORM STRENGTH: 25 MILLIGRAM?START DATE TEXT: BEFORE SKYRIZI.
     Route: 048
  5. ATORVASTATIN [Concomitant]
     Active Substance: ATORVASTATIN
     Indication: Hypertension
     Dosage: START DATE TEXT: BEFORE SKYRIZI.?FORM STRENGTH: 20 MILLIGRAM
     Route: 048
  6. CARVEDILOL [Concomitant]
     Active Substance: CARVEDILOL
     Indication: Hypertension
     Dosage: FORM STRENGTH: 6.25 MILLIGRAM
     Route: 048
     Dates: start: 202402
  7. LOSARTAN POTASSIUM [Concomitant]
     Active Substance: LOSARTAN POTASSIUM
     Indication: Hypertension
     Dosage: START DATE TEXT: BEFORE SKYRIZI.?FORM STRENGTH: 50MG
     Route: 048

REACTIONS (11)
  - Haematochezia [Recovered/Resolved]
  - Anaemia [Recovered/Resolved]
  - Weight decreased [Recovered/Resolved]
  - Colon cancer [Recovered/Resolved]
  - Immunodeficiency [Recovered/Resolved]
  - Myalgia [Recovered/Resolved]
  - Headache [Recovered/Resolved]
  - Asthenia [Recovered/Resolved]
  - Sneezing [Recovered/Resolved]
  - Fatigue [Recovered/Resolved]
  - Influenza like illness [Recovered/Resolved]

NARRATIVE: CASE EVENT DATE: 20230101
